FAERS Safety Report 11880163 (Version 2)
Quarter: 2016Q1

REPORT INFORMATION
  Report Type: Spontaneous
  Country: US (occurrence: US)
  Receive Date: 20151230
  Receipt Date: 20160217
  Transmission Date: 20160526
  Serious: Yes (Other)
  Sender: FDA-Public Use
  Company Number: US-ASTRAZENECA-2012SE74396

PATIENT
  Age: 53 Year
  Sex: Male
  Weight: 81.6 kg

DRUGS (8)
  1. HYDROCODONE [Concomitant]
     Active Substance: HYDROCODONE
     Dates: start: 20120213
  2. CRESTOR [Suspect]
     Active Substance: ROSUVASTATIN CALCIUM
     Indication: BLOOD CHOLESTEROL INCREASED
     Route: 048
     Dates: start: 200601, end: 201304
  3. CRESTOR [Suspect]
     Active Substance: ROSUVASTATIN CALCIUM
     Indication: BLOOD CHOLESTEROL INCREASED
     Route: 048
     Dates: start: 20101221
  4. TOPROL XL [Concomitant]
     Active Substance: METOPROLOL SUCCINATE
     Dates: start: 20100820
  5. ECOTRIN [Concomitant]
     Active Substance: ASPIRIN
  6. IBUPROFEN. [Concomitant]
     Active Substance: IBUPROFEN
  7. METFORMIN [Concomitant]
     Active Substance: METFORMIN HYDROCHLORIDE
     Dates: start: 20110531
  8. ATORVASTATIN [Concomitant]
     Active Substance: ATORVASTATIN
     Dates: start: 20120524

REACTIONS (6)
  - Myocardial infarction [Unknown]
  - Cardiomyopathy [Unknown]
  - Type 2 diabetes mellitus [Not Recovered/Not Resolved]
  - Angina pectoris [Unknown]
  - Syncope [Unknown]
  - Blood triglycerides increased [Unknown]

NARRATIVE: CASE EVENT DATE: 2006
